FAERS Safety Report 22178504 (Version 1)
Quarter: 2023Q2

REPORT INFORMATION
  Report Type: Other
  Country: None (occurrence: IN)
  Receive Date: 20230405
  Receipt Date: 20230405
  Transmission Date: 20230721
  Serious: Yes (Hospitalization, Other)
  Sender: FDA-Public Use
  Company Number: IN-Breckenridge Pharmaceutical, Inc.-2139945

PATIENT
  Age: 20 Year
  Sex: Male

DRUGS (2)
  1. CLOBAZAM [Suspect]
     Active Substance: CLOBAZAM
     Indication: Seizure
     Route: 048
  2. LEVETIRACETAM [Suspect]
     Active Substance: LEVETIRACETAM
     Route: 048

REACTIONS (8)
  - Tubulointerstitial nephritis [Recovering/Resolving]
  - Creatinine urine increased [Unknown]
  - Acute kidney injury [Unknown]
  - Eosinophilia [Unknown]
  - Respiratory distress [Unknown]
  - Dyspnoea [Unknown]
  - Asthenia [Unknown]
  - Urine output decreased [Unknown]
